FAERS Safety Report 5339115-2 (Version None)
Quarter: 2007Q2

REPORT INFORMATION
  Report Type: 
  Country: None (occurrence: None)
  Receive Date: 20070530
  Receipt Date: 20070522
  Transmission Date: 20071010
  Serious: Yes (Death)
  Sender: FDA-Public Use
  Company Number: PH-PFIZER INC-2007041386

PATIENT
  Sex: Female

DRUGS (1)
  1. NORVASC [Suspect]

REACTIONS (4)
  - CARDIOMEGALY [None]
  - HYPERTENSION [None]
  - LIVER DISORDER [None]
  - URINARY TRACT DISORDER [None]
